FAERS Safety Report 21682749 (Version 6)
Quarter: 2022Q4

REPORT INFORMATION
  Report Type: Report from Study
  Country: US (occurrence: None)
  Receive Date: 20221205
  Receipt Date: 20221221
  Transmission Date: 20230113
  Serious: Yes (Hospitalization)
  Sender: FDA-Public Use
  Company Number: US-Eisai Medical Research-EC-2022-129208

PATIENT
  Age: 71 Year
  Sex: Male
  Weight: 91.6 kg

DRUGS (13)
  1. LENVATINIB [Suspect]
     Active Substance: LENVATINIB
     Indication: Squamous cell carcinoma of head and neck
     Route: 048
     Dates: start: 20220516, end: 20221127
  2. PEMBROLIZUMAB [Suspect]
     Active Substance: PEMBROLIZUMAB
     Indication: Squamous cell carcinoma of head and neck
     Route: 041
     Dates: start: 20220516, end: 20221108
  3. ALBUTEROL [Concomitant]
     Active Substance: ALBUTEROL
     Dates: start: 20210308
  4. AMLODIPINE [Concomitant]
     Active Substance: AMLODIPINE BESYLATE
     Dates: start: 201901
  5. BENZONATATE [Concomitant]
     Active Substance: BENZONATATE
     Dates: start: 20210810
  6. ACETAMINOPHEN\HYDROCODONE BITARTRATE [Concomitant]
     Active Substance: ACETAMINOPHEN\HYDROCODONE BITARTRATE
     Dates: start: 20220412
  7. LIDOCAINE [Concomitant]
     Active Substance: LIDOCAINE
     Dates: start: 20220428, end: 20221127
  8. LISINOPRIL [Concomitant]
     Active Substance: LISINOPRIL
     Dates: start: 201901, end: 20221203
  9. ROSUVASTATIN [Concomitant]
     Active Substance: ROSUVASTATIN
     Dates: start: 201901
  10. DENOSUMAB [Concomitant]
     Active Substance: DENOSUMAB
     Dates: start: 20220719
  11. OXYCODONE [Concomitant]
     Active Substance: OXYCODONE
     Dates: start: 20220831, end: 20221127
  12. GABAPENTIN [Concomitant]
     Active Substance: GABAPENTIN
     Dates: start: 20210420, end: 20221127
  13. DIPHENHYDRAMINE HYDROCHLORIDE;LIDOCAINE HYDROCHLORIDE;NYSTATIN [Concomitant]
     Dates: start: 20221018

REACTIONS (1)
  - Postoperative wound infection [Recovered/Resolved with Sequelae]

NARRATIVE: CASE EVENT DATE: 20221125
